FAERS Safety Report 20101167 (Version 1)
Quarter: 2021Q4

REPORT INFORMATION
  Report Type: Spontaneous
  Country: US (occurrence: None)
  Receive Date: 20211123
  Receipt Date: 20211123
  Transmission Date: 20220303
  Serious: Yes (Other)
  Sender: FDA-Public Use
  Company Number: US-ROCHE-2955985

PATIENT
  Age: 66 Year
  Sex: Female

DRUGS (1)
  1. OCREVUS [Suspect]
     Active Substance: OCRELIZUMAB
     Indication: Multiple sclerosis
     Dosage: ON 09/AUG/2021, SHE RECEIVED LAST DOSE OF OCREVUS
     Route: 065
     Dates: start: 20190115

REACTIONS (2)
  - Osteomyelitis [Unknown]
  - Intervertebral discitis [Unknown]
